FAERS Safety Report 7779707-4 (Version None)
Quarter: 2011Q3

REPORT INFORMATION
  Report Type: 
  Country: None (occurrence: None)
  Receive Date: 20110927
  Receipt Date: 20110922
  Transmission Date: 20111222
  Serious: Yes (Other)
  Sender: FDA-Public Use
  Company Number: US-PFIZER INC-2011226326

PATIENT
  Sex: Female

DRUGS (2)
  1. PREMARIN [Suspect]
     Dosage: UNK
  2. XANAX [Suspect]
     Dosage: UNK

REACTIONS (5)
  - DYSKINESIA [None]
  - MENTAL IMPAIRMENT [None]
  - AMNESIA [None]
  - MALAISE [None]
  - DISTURBANCE IN ATTENTION [None]
